FAERS Safety Report 20195229 (Version 1)
Quarter: 2021Q4

REPORT INFORMATION
  Report Type: Spontaneous
  Country: US (occurrence: None)
  Receive Date: 20211216
  Receipt Date: 20211216
  Transmission Date: 20220303
  Serious: No
  Sender: FDA-Public Use
  Company Number: None

PATIENT
  Age: 43 Year
  Sex: Female
  Weight: 58.97 kg

DRUGS (2)
  1. ESTRADIOL [Suspect]
     Active Substance: ESTRADIOL
     Indication: Premature menopause
     Dosage: FREQUENCY : WEEKLY; 24 HR?
     Route: 062
     Dates: start: 20211108, end: 20211126
  2. ESTRADIOL [Suspect]
     Active Substance: ESTRADIOL
     Indication: Menopausal symptoms

REACTIONS (3)
  - Application site erythema [None]
  - Application site irritation [None]
  - Application site pruritus [None]

NARRATIVE: CASE EVENT DATE: 20211108
